FAERS Safety Report 7790556-3 (Version None)
Quarter: 2011Q3

REPORT INFORMATION
  Report Type: 
  Country: None (occurrence: None)
  Receive Date: 20110930
  Receipt Date: 20100331
  Transmission Date: 20111222
  Serious: No
  Sender: FDA-Public Use
  Company Number: US-BAYER-2011-053619

PATIENT

DRUGS (1)
  1. AVELOX [Suspect]

REACTIONS (1)
  - SUNBURN [None]
